FAERS Safety Report 10265744 (Version 2)
Quarter: 2014Q3

REPORT INFORMATION
  Report Type: Report from Study
  Country: CA (occurrence: CA)
  Receive Date: 20140627
  Receipt Date: 20140704
  Transmission Date: 20150326
  Serious: Yes (Other)
  Sender: FDA-Public Use
  Company Number: CA-JNJFOC-20140616724

PATIENT
  Sex: Male
  Weight: 70.31 kg

DRUGS (1)
  1. REMICADE [Suspect]
     Active Substance: INFLIXIMAB
     Indication: CROHN^S DISEASE
     Dosage: 1-2 YEARS
     Route: 042
     Dates: start: 20120720

REACTIONS (4)
  - Alopecia [Unknown]
  - Skin plaque [Unknown]
  - Skin lesion [Unknown]
  - Rash pustular [Unknown]
